FAERS Safety Report 10032514 (Version 1)
Quarter: 2014Q1

REPORT INFORMATION
  Report Type: Spontaneous
  Country: US (occurrence: US)
  Receive Date: 20140324
  Receipt Date: 20140324
  Transmission Date: 20141002
  Serious: No
  Sender: FDA-Public Use
  Company Number: US-SHIONOGI, INC-2014000020

PATIENT
  Age: 57 Year
  Sex: Female
  Weight: 47.17 kg

DRUGS (3)
  1. OSPHENA [Suspect]
     Indication: DYSPAREUNIA
     Dosage: 60 MG, QD
     Route: 048
     Dates: start: 20131223, end: 20140116
  2. VIVELLE DOT [Concomitant]
  3. VAGIFEM [Concomitant]

REACTIONS (1)
  - Swelling face [Recovering/Resolving]
